FAERS Safety Report 19925088 (Version 1)
Quarter: 2021Q4

REPORT INFORMATION
  Report Type: Spontaneous
  Country: FR (occurrence: FR)
  Receive Date: 20211006
  Receipt Date: 20211006
  Transmission Date: 20220303
  Serious: Yes (Hospitalization)
  Sender: FDA-Public Use
  Company Number: None

PATIENT
  Age: 48 Year
  Sex: Male

DRUGS (4)
  1. BROMAZEPAM [Suspect]
     Active Substance: BROMAZEPAM
     Indication: Intentional overdose
     Dosage: UNK (NP)
     Route: 048
     Dates: start: 20210704, end: 20210704
  2. FLUOXETINE [Suspect]
     Active Substance: FLUOXETINE HYDROCHLORIDE
     Indication: Product used for unknown indication
     Dosage: UNK
     Route: 065
  3. ALCOHOL [Suspect]
     Active Substance: ALCOHOL
     Indication: Product used for unknown indication
     Dosage: UNK
     Route: 065
  4. CYAMEMAZINE [Suspect]
     Active Substance: CYAMEMAZINE
     Indication: Product used for unknown indication
     Dosage: UNK
     Route: 065

REACTIONS (6)
  - Coma [Recovered/Resolved]
  - Electrocardiogram QT prolonged [Unknown]
  - Hypothermia [Recovered/Resolved]
  - Poisoning deliberate [Recovered/Resolved]
  - Miosis [Unknown]
  - Pneumonitis [Unknown]

NARRATIVE: CASE EVENT DATE: 20210704
